FAERS Safety Report 6993858-3 (Version None)
Quarter: 2010Q3

REPORT INFORMATION
  Report Type: 
  Country: None (occurrence: None)
  Receive Date: 20100917
  Receipt Date: 20070530
  Transmission Date: 20110219
  Serious: Yes (Disabling)
  Sender: FDA-Public Use
  Company Number: US-ASTRAZENECA-2006UW21796

PATIENT
  Age: 13889 Day
  Sex: Female
  Weight: 146.1 kg

DRUGS (16)
  1. SEROQUEL [Suspect]
     Indication: SCHIZOPHRENIA
     Dosage: 200 MG-400 MG
     Route: 048
     Dates: start: 20000112
  2. SEROQUEL [Suspect]
     Indication: SCHIZOAFFECTIVE DISORDER BIPOLAR TYPE
     Dosage: 200 MG-400 MG
     Route: 048
     Dates: start: 20000112
  3. SEROQUEL [Suspect]
     Route: 048
  4. SEROQUEL [Suspect]
     Route: 048
  5. ABILIFY [Concomitant]
  6. GEODON [Concomitant]
  7. HALDOL [Concomitant]
  8. RISPERDAL [Concomitant]
  9. WELLBUTRIN [Concomitant]
     Indication: SCHIZOAFFECTIVE DISORDER BIPOLAR TYPE
     Route: 048
     Dates: start: 20000423
  10. NEUROTEN [Concomitant]
  11. VALIUM [Concomitant]
     Indication: SCHIZOAFFECTIVE DISORDER BIPOLAR TYPE
     Route: 048
     Dates: start: 20011015
  12. TRIZADONE [Concomitant]
  13. SYNTHROID [Concomitant]
     Dates: start: 20000112
  14. VIOXX [Concomitant]
     Dates: start: 20000112
  15. PREVACID [Concomitant]
     Dates: start: 20000112
  16. TOPAMAX [Concomitant]
     Route: 048
     Dates: start: 20011015

REACTIONS (3)
  - DIABETES MELLITUS [None]
  - TYPE 1 DIABETES MELLITUS [None]
  - TYPE 2 DIABETES MELLITUS [None]
